FAERS Safety Report 25917608 (Version 1)
Quarter: 2025Q4

REPORT INFORMATION
  Report Type: Spontaneous
  Country: US (occurrence: US)
  Receive Date: 20251014
  Receipt Date: 20251014
  Transmission Date: 20260117
  Serious: No
  Sender: TOLMAR
  Company Number: US-Tolmar-TLM-2025-06977

PATIENT

DRUGS (2)
  1. FENSOLVI [Suspect]
     Active Substance: LEUPROLIDE ACETATE
     Indication: Precocious puberty
     Dosage: SERIAL NUMBER OF BOX: 4978909337863?GTIN: 00362935163602?OCT-2026; SEP-2026; SEP-2026
  2. DEVICE [Suspect]
     Active Substance: DEVICE
     Indication: Precocious puberty
     Dosage: OCT-2026; SEP-2026; SEP-2026?SERIAL NUMBER OF BOX: 4978909337863?GTIN: 00362935163602

REACTIONS (2)
  - Intercepted product preparation error [Unknown]
  - Wrong technique in product usage process [Unknown]
